FAERS Safety Report 9897273 (Version 1)
Quarter: 2014Q1

REPORT INFORMATION
  Report Type: Spontaneous
  Country: US (occurrence: US)
  Receive Date: 20140214
  Receipt Date: 20140214
  Transmission Date: 20141002
  Serious: Yes (Hospitalization, Other)
  Sender: FDA-Public Use
  Company Number: US-SA-2014SA017216

PATIENT
  Age: 60 Year
  Sex: Male

DRUGS (3)
  1. FABRAZYME [Suspect]
     Indication: FABRY^S DISEASE
     Route: 042
     Dates: end: 20140118
  2. PROGRAF [Concomitant]
     Indication: IMMUNOSUPPRESSION
  3. CELLCEPT [Concomitant]
     Indication: IMMUNOSUPPRESSION

REACTIONS (3)
  - Osteomyelitis [Not Recovered/Not Resolved]
  - Drug dose omission [Unknown]
  - Foot fracture [Not Recovered/Not Resolved]
